FAERS Safety Report 16589667 (Version 1)
Quarter: 2019Q3

REPORT INFORMATION
  Report Type: Other
  Country: US (occurrence: US)
  Receive Date: 20190718
  Receipt Date: 20190718
  Transmission Date: 20191004
  Serious: No
  Sender: FDA-Public Use
  Company Number: US-SWEDISH ORPHAN BIOVITRUM-2019US0574

PATIENT
  Sex: Male

DRUGS (1)
  1. KINERET [Suspect]
     Active Substance: ANAKINRA
     Dosage: THE REPORTER STATES THAT THE DOSE GIVEN WAS 100MG AS OPPOSED TO THE 50MG PRESCRIBED DUE TO THE PATIE
     Route: 058

REACTIONS (1)
  - Muscle twitching [Recovered/Resolved]
